FAERS Safety Report 23438766 (Version 3)
Quarter: 2024Q2

REPORT INFORMATION
  Report Type: Spontaneous
  Country: US (occurrence: US)
  Receive Date: 20240124
  Receipt Date: 20240417
  Transmission Date: 20240716
  Serious: No
  Sender: FDA-Public Use
  Company Number: US-SA-SAC20240122000803

PATIENT
  Age: 54 Year
  Sex: Male

DRUGS (1)
  1. DUPIXENT [Suspect]
     Active Substance: DUPILUMAB
     Indication: Chronic rhinosinusitis with nasal polyps
     Dosage: 300 MG, QOW
     Route: 058

REACTIONS (7)
  - Nasal congestion [Not Recovered/Not Resolved]
  - Dyspnoea [Unknown]
  - Ear discomfort [Unknown]
  - Anosmia [Not Recovered/Not Resolved]
  - Nasal polyps [Unknown]
  - Intentional dose omission [Unknown]
  - Drug ineffective [Unknown]
